FAERS Safety Report 25589701 (Version 1)
Quarter: 2025Q3

REPORT INFORMATION
  Report Type: Report from Study
  Country: US (occurrence: US)
  Receive Date: 20250722
  Receipt Date: 20250722
  Transmission Date: 20251020
  Serious: No
  Sender: SUNOVION
  Company Number: US-SUMITOMO PHARMA SWITZERLAND GMBH-2025SPA008579

PATIENT

DRUGS (4)
  1. ORGOVYX [Suspect]
     Active Substance: RELUGOLIX
     Indication: Prostate cancer
     Route: 048
     Dates: start: 20250523
  2. ORGOVYX [Suspect]
     Active Substance: RELUGOLIX
     Route: 048
     Dates: start: 20250524
  3. Ampk [Concomitant]
     Route: 065
  4. FISETIN [Concomitant]
     Active Substance: FISETIN
     Route: 065

REACTIONS (5)
  - Somnolence [Unknown]
  - Feeling of body temperature change [Unknown]
  - Hyperhidrosis [Unknown]
  - Fatigue [Unknown]
  - Hot flush [Unknown]
